FAERS Safety Report 8217296 (Version 7)
Quarter: 2014Q3

REPORT INFORMATION
  Report Type: Spontaneous
  Country: JP (occurrence: JP)
  Receive Date: 20111101
  Receipt Date: 20140904
  Transmission Date: 20150326
  Serious: Yes (Death, Life-Threatening, Other)
  Sender: FDA-Public Use
  Company Number: PHHY2011JP95731

PATIENT
  Age: 63 Year
  Sex: Male
  Weight: 49 kg

DRUGS (35)
  1. CLOZARIL [Suspect]
     Active Substance: CLOZAPINE
     Indication: SENSORY INTEGRATIVE DYSFUNCTION
     Dosage: 25 MG
     Route: 048
     Dates: start: 20100923, end: 20100923
  2. CLOZARIL [Suspect]
     Active Substance: CLOZAPINE
     Dosage: 100 MG, UNK
     Route: 048
     Dates: start: 20110216, end: 20110329
  3. CLOZARIL [Suspect]
     Active Substance: CLOZAPINE
     Dosage: 175 MG, UNK
     Route: 048
     Dates: start: 20110608, end: 20110614
  4. LEXIN [Concomitant]
     Active Substance: CEPHALEXIN
     Indication: SCHIZOPHRENIA, PARANOID TYPE
     Dosage: 600 MG, UNK
     Route: 048
     Dates: start: 20111021, end: 20111024
  5. CLOZARIL [Suspect]
     Active Substance: CLOZAPINE
     Dosage: 50 MG
     Route: 048
     Dates: start: 20100926, end: 20100928
  6. CLOZARIL [Suspect]
     Active Substance: CLOZAPINE
     Dosage: 150 MG, UNK
     Route: 048
     Dates: start: 20101013, end: 20101026
  7. CLOZARIL [Suspect]
     Active Substance: CLOZAPINE
     Dosage: 175 MG, UNK
     Route: 048
     Dates: start: 20101027, end: 20101102
  8. CLOZARIL [Suspect]
     Active Substance: CLOZAPINE
     Dosage: 200 MG, UNK
     Route: 048
     Dates: start: 20101103, end: 20101112
  9. LIMAS [Suspect]
     Active Substance: LITHIUM CARBONATE
     Dosage: 1000 MG, DAILY
     Route: 048
     Dates: start: 20110923, end: 20111023
  10. ROHYPNOL [Concomitant]
     Active Substance: FLUNITRAZEPAM
     Indication: SCHIZOPHRENIA, PARANOID TYPE
     Dosage: 2 MG, UNK
     Route: 048
     Dates: end: 20111025
  11. HALCION [Concomitant]
     Active Substance: TRIAZOLAM
     Indication: SCHIZOPHRENIA, PARANOID TYPE
     Dosage: 0.25 MG, UNK
     Route: 048
     Dates: start: 20111005, end: 20111024
  12. CLOZARIL [Suspect]
     Active Substance: CLOZAPINE
     Dosage: 100 MG
     Route: 048
     Dates: start: 20101002, end: 20101005
  13. LAMICTAL [Suspect]
     Active Substance: LAMOTRIGINE
     Indication: SCHIZOPHRENIA, PARANOID TYPE
     Dosage: UNK UKN, UNK
     Dates: start: 20111001, end: 20111025
  14. ROZEREM [Concomitant]
     Active Substance: RAMELTEON
     Indication: SCHIZOPHRENIA, PARANOID TYPE
     Dosage: 8 MG, UNK
     Route: 048
     Dates: start: 20100901, end: 20111025
  15. CLOZARIL [Suspect]
     Active Substance: CLOZAPINE
     Dosage: 50 MG, UNK
     Route: 048
     Dates: start: 20110112, end: 20110113
  16. CLOZARIL [Suspect]
     Active Substance: CLOZAPINE
     Dosage: UNK UKN, UNK
     Dates: end: 20111025
  17. CLOZARIL [Suspect]
     Active Substance: CLOZAPINE
     Indication: SCHIZOPHRENIA, PARANOID TYPE
     Dosage: 12.5 MG
     Route: 048
     Dates: start: 20100922, end: 20100922
  18. CLOZARIL [Suspect]
     Active Substance: CLOZAPINE
     Dosage: 125 MG, UNK
     Route: 048
     Dates: start: 20110330, end: 20110517
  19. CLOZARIL [Suspect]
     Active Substance: CLOZAPINE
     Dosage: 200 MG, UNK
     Route: 048
     Dates: start: 20110615, end: 20110809
  20. CLOZARIL [Suspect]
     Active Substance: CLOZAPINE
     Dosage: 400 MG, UNK
     Route: 048
     Dates: start: 20111021, end: 20111023
  21. LIMAS [Suspect]
     Active Substance: LITHIUM CARBONATE
     Indication: SCHIZOPHRENIA, PARANOID TYPE
     Dosage: 800 MG, DAILY
     Route: 048
     Dates: start: 20100107, end: 20110112
  22. FORSENID [Concomitant]
     Indication: CONSTIPATION
     Dosage: 8 MG, UNK
     Route: 048
     Dates: end: 20111025
  23. CLOZARIL [Suspect]
     Active Substance: CLOZAPINE
     Dosage: 125 MG
     Route: 048
     Dates: start: 20101006, end: 20101012
  24. LIMAS [Suspect]
     Active Substance: LITHIUM CARBONATE
     Dosage: 600 MG, DAILY
     Route: 048
     Dates: start: 20111024, end: 20111025
  25. BIBITTOACE [Concomitant]
     Active Substance: FLUNITRAZEPAM
     Indication: SCHIZOPHRENIA, PARANOID TYPE
     Dosage: 2 MG, UNK
     Dates: end: 20110112
  26. FORSENID [Concomitant]
     Dosage: 36 MG, UNK
     Route: 048
     Dates: end: 20111024
  27. MEROPENEM. [Concomitant]
     Active Substance: MEROPENEM
     Dosage: UNK UKN, UNK
  28. CLOZARIL [Suspect]
     Active Substance: CLOZAPINE
     Dosage: 100 MG, UNK
     Route: 048
     Dates: start: 20101113, end: 20110111
  29. CLOZARIL [Suspect]
     Active Substance: CLOZAPINE
     Dosage: 150 MG, UNK
     Route: 048
     Dates: start: 20110518, end: 20110607
  30. CLOZARIL [Suspect]
     Active Substance: CLOZAPINE
     Dosage: 300 MG, UNK
     Route: 048
     Dates: start: 20110810, end: 20110906
  31. CLOZARIL [Suspect]
     Active Substance: CLOZAPINE
     Dosage: 400 MG, DAILY
     Route: 048
     Dates: start: 20110907, end: 20111004
  32. CLOZARIL [Suspect]
     Active Substance: CLOZAPINE
     Dosage: 500 MG
     Route: 048
     Dates: start: 20111005, end: 20111020
  33. CLOZARIL [Suspect]
     Active Substance: CLOZAPINE
     Dosage: 300 MG, UNK
     Route: 048
     Dates: start: 20111024, end: 20111025
  34. CLOZARIL [Suspect]
     Active Substance: CLOZAPINE
     Dosage: 75 MG
     Route: 048
     Dates: start: 20100929, end: 20101001
  35. CLOZARIL [Suspect]
     Active Substance: CLOZAPINE
     Dosage: 75 MG, UNK
     Route: 048
     Dates: start: 20110114, end: 20110215

REACTIONS (25)
  - Shock [Fatal]
  - Poriomania [Unknown]
  - C-reactive protein increased [Fatal]
  - Delusion [Unknown]
  - Logorrhoea [Unknown]
  - Renal impairment [Not Recovered/Not Resolved]
  - Drug effect incomplete [Unknown]
  - Neuroleptic malignant syndrome [Fatal]
  - Hyperkinesia [Not Recovered/Not Resolved]
  - Blood creatine phosphokinase increased [Fatal]
  - Osteomyelitis [Not Recovered/Not Resolved]
  - Hallucination [Unknown]
  - Insomnia [Unknown]
  - Decreased appetite [Recovered/Resolved]
  - Fall [Not Recovered/Not Resolved]
  - Dysphagia [Not Recovered/Not Resolved]
  - Somnolence [Recovered/Resolved]
  - Pyrexia [Fatal]
  - Multi-organ failure [Fatal]
  - Clavicle fracture [Not Recovered/Not Resolved]
  - Mania [Not Recovered/Not Resolved]
  - Depressed level of consciousness [Fatal]
  - Paranoia [Not Recovered/Not Resolved]
  - Pneumonia aspiration [Unknown]
  - Muscle tightness [Unknown]

NARRATIVE: CASE EVENT DATE: 201110
